FAERS Safety Report 14907082 (Version 1)
Quarter: 2018Q2

REPORT INFORMATION
  Report Type: Spontaneous
  Country: US (occurrence: US)
  Receive Date: 20180517
  Receipt Date: 20180517
  Transmission Date: 20180711
  Serious: No
  Sender: FDA-Public Use
  Company Number: US-SHIRE-US201818527

PATIENT
  Sex: Female

DRUGS (1)
  1. XIIDRA [Suspect]
     Active Substance: LIFITEGRAST
     Indication: PRIMARY IMMUNODEFICIENCY SYNDROME
     Route: 047

REACTIONS (4)
  - Dysgeusia [Unknown]
  - Instillation site reaction [Unknown]
  - Dry eye [Unknown]
  - Instillation site pain [Unknown]
